FAERS Safety Report 12519843 (Version 1)
Quarter: 2016Q2

REPORT INFORMATION
  Report Type: Spontaneous
  Country: JP (occurrence: JP)
  Receive Date: 20160630
  Receipt Date: 20160630
  Transmission Date: 20160815
  Serious: Yes (Other)
  Sender: FDA-Public Use
  Company Number: JP-PFIZER INC-2016312366

PATIENT
  Age: 63 Year
  Sex: Male

DRUGS (2)
  1. SPONGEL [Concomitant]
     Dosage: UNK
  2. EPIRUBICIN HCL [Suspect]
     Active Substance: EPIRUBICIN HYDROCHLORIDE
     Indication: HEPATOCELLULAR CARCINOMA
     Dosage: UNK

REACTIONS (1)
  - Cholecystitis infective [Recovering/Resolving]
